FAERS Safety Report 8251714 (Version 2)
Quarter: 2014Q3

REPORT INFORMATION
  Report Type: Spontaneous
  Country: US (occurrence: US)
  Receive Date: 20111117
  Receipt Date: 20140922
  Transmission Date: 20150326
  Serious: Yes (Other)
  Sender: FDA-Public Use
  Company Number: US-AMGEN-USASP2011007238

PATIENT
  Age: 56 Year
  Sex: Female
  Weight: 72.11 kg

DRUGS (2)
  1. ENBREL [Suspect]
     Active Substance: ETANERCEPT
     Dosage: UNK
     Route: 065
  2. ENBREL [Suspect]
     Active Substance: ETANERCEPT
     Indication: RHEUMATOID ARTHRITIS
     Dosage: 50 MG, QWK
     Route: 065
     Dates: start: 20101220, end: 20140627

REACTIONS (15)
  - Injection site bruising [Unknown]
  - Feeling abnormal [Recovered/Resolved]
  - Eye pruritus [Recovered/Resolved]
  - Dry skin [Recovered/Resolved]
  - Rash [Recovered/Resolved]
  - Sinus disorder [Recovered/Resolved]
  - Injection site erythema [Recovered/Resolved]
  - Dry mouth [Recovered/Resolved]
  - Rheumatoid arthritis [Recovered/Resolved]
  - Pruritus [Recovered/Resolved]
  - Injection site warmth [Recovered/Resolved]
  - Erythema [Recovered/Resolved]
  - Arthralgia [Recovered/Resolved]
  - Dry eye [Recovered/Resolved]
  - Injection site pruritus [Recovered/Resolved]

NARRATIVE: CASE EVENT DATE: 2012
